FAERS Safety Report 5488656-6 (Version None)
Quarter: 2007Q4

REPORT INFORMATION
  Report Type: 
  Country: None (occurrence: None)
  Receive Date: 20071017
  Receipt Date: 20070727
  Transmission Date: 20080405
  Serious: No
  Sender: FDA-Public Use
  Company Number: A0656581A

PATIENT
  Age: 13 Month
  Sex: Female

DRUGS (2)
  1. CEFTIN [Suspect]
     Indication: OTITIS MEDIA ACUTE
     Dosage: 3ML PER DAY
     Route: 048
  2. TYLENOL (CAPLET) [Concomitant]

REACTIONS (2)
  - IRRITABILITY [None]
  - PHARMACEUTICAL PRODUCT COMPLAINT [None]
